FAERS Safety Report 19565312 (Version 5)
Quarter: 2024Q4

REPORT INFORMATION
  Report Type: Report from Study
  Country: US (occurrence: US)
  Receive Date: 20210716
  Receipt Date: 20241223
  Transmission Date: 20250115
  Serious: Yes (Hospitalization, Disabling, Other)
  Sender: TAKEDA
  Company Number: US-TAKEDA-2021TUS043865

PATIENT
  Sex: Female

DRUGS (1)
  1. VEDOLIZUMAB [Suspect]
     Active Substance: VEDOLIZUMAB
     Indication: Colitis ulcerative
     Dosage: 300 MILLIGRAM, Q6WEEKS

REACTIONS (8)
  - Cataract [Unknown]
  - Colitis ulcerative [Unknown]
  - Feeling abnormal [Unknown]
  - Disturbance in attention [Unknown]
  - Lung neoplasm malignant [Unknown]
  - Off label use [Unknown]
  - Nasopharyngitis [Unknown]
  - Sinusitis [Unknown]
